FAERS Safety Report 20047514 (Version 2)
Quarter: 2021Q4

REPORT INFORMATION
  Report Type: Spontaneous
  Country: IT (occurrence: IT)
  Receive Date: 20211109
  Receipt Date: 20211220
  Transmission Date: 20220304
  Serious: Yes (Other)
  Sender: FDA-Public Use
  Company Number: None

PATIENT
  Age: 52 Year
  Sex: Female

DRUGS (1)
  1. LUTATHERA [Suspect]
     Active Substance: LUTETIUM OXODOTREOTIDE LU-177
     Indication: Neuroendocrine tumour
     Dosage: 7304 MBQ, CYCLIC
     Route: 042
     Dates: start: 20210802, end: 20210927

REACTIONS (1)
  - Haematotoxicity [Not Recovered/Not Resolved]

NARRATIVE: CASE EVENT DATE: 20210906
